FAERS Safety Report 19859124 (Version 1)
Quarter: 2021Q3

REPORT INFORMATION
  Report Type: Spontaneous
  Country: US (occurrence: US)
  Receive Date: 20210921
  Receipt Date: 20210921
  Transmission Date: 20211014
  Serious: No
  Sender: FDA-Public Use
  Company Number: US-DRREDDYS-SPO/USA/21/0140290

PATIENT
  Age: 69 Year
  Sex: Female
  Weight: 72 kg

DRUGS (1)
  1. SUMATRIPTAN INJECTION USP, 6 MG/0.5 ML [Suspect]
     Active Substance: SUMATRIPTAN
     Indication: MIGRAINE
     Dosage: 6 MG/ 0.5 ML

REACTIONS (2)
  - Administration site bruise [Unknown]
  - Product quality issue [Unknown]
